FAERS Safety Report 9252997 (Version 1)
Quarter: 2013Q2

REPORT INFORMATION
  Report Type: Spontaneous
  Country: US (occurrence: US)
  Receive Date: 20130424
  Receipt Date: 20130424
  Transmission Date: 20140414
  Serious: No
  Sender: FDA-Public Use
  Company Number: US-TEVA-399417USA

PATIENT
  Age: 49 Year
  Sex: Female
  Weight: 70.37 kg

DRUGS (2)
  1. PLAN B ONE-STEP [Suspect]
     Indication: POST COITAL CONTRACEPTION
     Dosage: 1.5 MILLIGRAM DAILY;
     Route: 048
     Dates: start: 20130409, end: 20130409
  2. BENADRYL [Concomitant]
     Indication: MULTIPLE ALLERGIES

REACTIONS (1)
  - Metrorrhagia [Not Recovered/Not Resolved]
